FAERS Safety Report 4450477-0 (Version None)
Quarter: 2004Q3

REPORT INFORMATION
  Report Type: 
  Country: None (occurrence: None)
  Receive Date: 20040914
  Receipt Date: 20040831
  Transmission Date: 20050211
  Serious: Yes (Hospitalization)
  Sender: FDA-Public Use
  Company Number: F01200301272

PATIENT
  Age: 57 Year
  Sex: Female

DRUGS (12)
  1. OXALIPLATIN - SOLUTION - 130 MG/M2 [Suspect]
     Indication: COLORECTAL CANCER
     Dosage: 130 MG/M2 Q3W INTRAVENOUS NOS
     Route: 042
     Dates: start: 20031023, end: 20031023
  2. CAPECITABINE - TABLET - 1000 MG/M2 [Suspect]
     Dosage: 1000 MG/M2 TWICE DAILY FROM D1 TO D15, Q3W ORAL
     Route: 048
     Dates: start: 20031023, end: 20031029
  3. PROTONIX [Concomitant]
  4. ZOLOFT [Concomitant]
  5. ZAROXOLYN [Concomitant]
  6. LASIX [Concomitant]
  7. EVISTA [Concomitant]
  8. ZIAC (BISELECT) [Concomitant]
  9. LORTAB (HYDROCODONE TARTRATE+PARACETAMOL) [Concomitant]
  10. NEXIUM [Concomitant]
  11. REGLAN [Concomitant]
  12. KYTRIL [Concomitant]

REACTIONS (25)
  - ANAEMIA [None]
  - ASCITES [None]
  - ASPARTATE AMINOTRANSFERASE INCREASED [None]
  - ATELECTASIS [None]
  - BLOOD ALBUMIN DECREASED [None]
  - BLOOD BILIRUBIN INCREASED [None]
  - BLOOD PRESSURE INCREASED [None]
  - BLOOD SODIUM DECREASED [None]
  - BLOOD UREA DECREASED [None]
  - CARDIOMEGALY [None]
  - COLORECTAL CANCER STAGE IV [None]
  - GENERAL PHYSICAL HEALTH DETERIORATION [None]
  - GENERALISED OEDEMA [None]
  - HYDRONEPHROSIS [None]
  - LUNG INFILTRATION [None]
  - LYMPHADENOPATHY [None]
  - MALIGNANT NEOPLASM PROGRESSION [None]
  - NECROSIS [None]
  - PERICARDIAL EFFUSION [None]
  - PLATELET COUNT DECREASED [None]
  - PLEURAL EFFUSION [None]
  - PROTEIN TOTAL DECREASED [None]
  - RENAL ATROPHY [None]
  - RENAL FAILURE [None]
  - SPLENOMEGALY [None]
